FAERS Safety Report 5405069-3 (Version None)
Quarter: 2007Q3

REPORT INFORMATION
  Report Type: 
  Country: None (occurrence: None)
  Receive Date: 20070803
  Receipt Date: 20070723
  Transmission Date: 20080115
  Serious: Yes (Disabling)
  Sender: FDA-Public Use
  Company Number: JP-ASTRAZENECA-2007AP04451

PATIENT
  Age: 73 Year
  Sex: Male

DRUGS (3)
  1. NAROPIN [Suspect]
     Indication: EPIDURAL ANAESTHESIA
     Route: 008
     Dates: start: 20070706, end: 20070708
  2. MARCAINE [Concomitant]
     Indication: SPINAL ANAESTHESIA
     Route: 037
     Dates: start: 20070706, end: 20070706
  3. FENTANYL [Concomitant]
     Indication: EPIDURAL ANAESTHESIA
     Route: 008
     Dates: start: 20070706, end: 20070708

REACTIONS (1)
  - DIPLEGIA [None]
